FAERS Safety Report 12424875 (Version 1)
Quarter: 2016Q2

REPORT INFORMATION
  Report Type: Spontaneous
  Country: JP (occurrence: JP)
  Receive Date: 20160601
  Receipt Date: 20160601
  Transmission Date: 20160815
  Serious: Yes (Other)
  Sender: FDA-Public Use
  Company Number: JP-PFIZER INC-2016278279

PATIENT
  Sex: Male

DRUGS (1)
  1. HALCION [Suspect]
     Active Substance: TRIAZOLAM
     Route: 048

REACTIONS (1)
  - Renal impairment [Unknown]
